FAERS Safety Report 4319295-8 (Version None)
Quarter: 2004Q1

REPORT INFORMATION
  Report Type: 
  Country: None (occurrence: None)
  Receive Date: 20040318
  Receipt Date: 20040318
  Transmission Date: 20041129
  Serious: Yes (Hospitalization)
  Sender: FDA-Public Use
  Company Number: None

PATIENT
  Age: 82 Year
  Sex: Male
  Weight: 63 kg

DRUGS (14)
  1. DILANTIN [Suspect]
     Indication: CEREBROVASCULAR ACCIDENT
     Dosage: 300 MG QPM ORAL
     Route: 048
     Dates: start: 20031120, end: 20040106
  2. DILANTIN [Suspect]
     Indication: CONVULSION
     Dosage: 300 MG QPM ORAL
     Route: 048
     Dates: start: 20031120, end: 20040106
  3. DILANTIN [Suspect]
     Indication: DEMENTIA
     Dosage: 300 MG QPM ORAL
     Route: 048
     Dates: start: 20031120, end: 20040106
  4. DILANTIN [Suspect]
     Dosage: 250 MG QAM ORAL
     Route: 048
  5. AMIODARONE HCL [Concomitant]
  6. DIGOXIN [Concomitant]
  7. DILTIAZEM [Concomitant]
  8. INSULIN REG [Concomitant]
  9. HUMAN INJ SLIDING SCALE [Concomitant]
  10. LEVOTHYROXINE SODIUM [Concomitant]
  11. METOPROLOL [Concomitant]
  12. OXCARBAZEPINE [Concomitant]
  13. RANITIDINE [Concomitant]
  14. TERAZOSIN HCL [Concomitant]

REACTIONS (5)
  - COMA [None]
  - DRUG LEVEL ABOVE THERAPEUTIC [None]
  - DRUG LEVEL BELOW THERAPEUTIC [None]
  - LETHARGY [None]
  - TREATMENT NONCOMPLIANCE [None]
